FAERS Safety Report 16771794 (Version 3)
Quarter: 2019Q4

REPORT INFORMATION
  Report Type: Other
  Country: US (occurrence: US)
  Receive Date: 20190904
  Receipt Date: 20191212
  Transmission Date: 20200122
  Serious: No
  Sender: FDA-Public Use
  Company Number: US-AMAG PHARMACEUTICALS, INC.-AMAG201904050

PATIENT
  Age: 27 Year
  Sex: Female

DRUGS (3)
  1. PROVENTIL HFA [Concomitant]
     Active Substance: ALBUTEROL SULFATE
     Indication: WHEEZING
  2. MAKENA [Suspect]
     Active Substance: HYDROXYPROGESTERONE CAPROATE
     Indication: PREMATURE DELIVERY
     Dosage: 250MG/ML, WEEKLY
     Route: 058
     Dates: start: 20190620, end: 20190822
  3. PRENATAL VITAMINS [Concomitant]
     Active Substance: VITAMINS
     Indication: SUPPLEMENTATION THERAPY

REACTIONS (4)
  - Injection site mass [Unknown]
  - Mood swings [Recovered/Resolved]
  - Injection site pain [Unknown]
  - Gestational hypertension [Not Recovered/Not Resolved]

NARRATIVE: CASE EVENT DATE: 20190712
